FAERS Safety Report 15837390 (Version 6)
Quarter: 2022Q3

REPORT INFORMATION
  Report Type: Report from Study
  Country: BR (occurrence: BR)
  Receive Date: 20190117
  Receipt Date: 20220831
  Transmission Date: 20221027
  Serious: Yes (Hospitalization, Other)
  Sender: FDA-Public Use
  Company Number: PHHY2018BR192236

PATIENT
  Sex: Female
  Weight: 72 kg

DRUGS (7)
  1. COSENTYX [Suspect]
     Active Substance: SECUKINUMAB
     Indication: Psoriatic arthropathy
     Dosage: 300 MG, QMO
     Route: 058
     Dates: start: 20180823
  2. COSENTYX [Suspect]
     Active Substance: SECUKINUMAB
     Indication: Psoriasis
     Dosage: 300 MG, QMO
     Route: 058
  3. COSENTYX [Suspect]
     Active Substance: SECUKINUMAB
     Dosage: 300 MG, QMO
     Route: 058
  4. COSENTYX [Suspect]
     Active Substance: SECUKINUMAB
     Dosage: UNK
     Route: 065
     Dates: start: 20220516
  5. LOSARTAN POTASSIUM [Concomitant]
     Active Substance: LOSARTAN POTASSIUM
     Indication: Chest discomfort
     Dosage: 2 DOSAGE FORM, QD (40 MG) 3 YRS AGO
     Route: 048
  6. BENSERAZIDE\LEVODOPA [Concomitant]
     Active Substance: BENSERAZIDE\LEVODOPA
     Indication: Parkinson^s disease
     Dosage: 1 DOSAGE FORM (01 TABLET OF 250MG) EVERY 03 HOURS 16 YRS AGO
     Route: 048
  7. PRAMIPEXOLE [Concomitant]
     Active Substance: PRAMIPEXOLE
     Indication: Parkinson^s disease
     Dosage: 1 DOSAGE FORM (01 TABLET OF 0,25MG) EVERY 3 HRS 16 YEARS AGO
     Route: 048

REACTIONS (18)
  - Bacterial infection [Recovered/Resolved]
  - Device related infection [Recovered/Resolved]
  - Therapeutic product effect incomplete [Not Recovered/Not Resolved]
  - Scar [Not Recovered/Not Resolved]
  - Weight decreased [Not Recovered/Not Resolved]
  - Gait inability [Unknown]
  - Malaise [Recovering/Resolving]
  - Panic disorder [Recovering/Resolving]
  - Concomitant disease aggravated [Recovering/Resolving]
  - Tremor [Unknown]
  - Joint swelling [Unknown]
  - Nosocomial infection [Recovered/Resolved]
  - Fatigue [Unknown]
  - Post procedural infection [Unknown]
  - Illness [Unknown]
  - Agitation [Unknown]
  - Device malfunction [Unknown]
  - Drug ineffective [Not Recovered/Not Resolved]

NARRATIVE: CASE EVENT DATE: 20200101
